FAERS Safety Report 9620111 (Version 2)
Quarter: 2013Q4

REPORT INFORMATION
  Report Type: Report from Study
  Country: US (occurrence: US)
  Receive Date: 20131014
  Receipt Date: 20131126
  Transmission Date: 20140711
  Serious: Yes (Hospitalization)
  Sender: FDA-Public Use
  Company Number: US-GLAXOSMITHKLINE-A1045303A

PATIENT
  Age: 48 Year
  Sex: Male
  Weight: 84 kg

DRUGS (2)
  1. PAZOPANIB [Suspect]
     Indication: NEOPLASM
     Dosage: 400MG PER DAY
     Route: 048
     Dates: start: 20130130, end: 20130428
  2. INVESTIGATIONAL DRUG [Suspect]
     Indication: NEOPLASM
     Dates: start: 20130130, end: 20130417

REACTIONS (2)
  - Sepsis [Recovered/Resolved]
  - Wound dehiscence [Recovered/Resolved]
